FAERS Safety Report 5799404-4 (Version None)
Quarter: 2008Q3

REPORT INFORMATION
  Report Type: 
  Country: None (occurrence: None)
  Receive Date: 20080703
  Receipt Date: 20080627
  Transmission Date: 20090109
  Serious: Yes (Other)
  Sender: FDA-Public Use
  Company Number: DE-PFIZER INC-2008054457

PATIENT
  Sex: Male
  Weight: 110 kg

DRUGS (3)
  1. CAMPTO [Suspect]
     Indication: COLON CANCER
     Dosage: DAILY DOSE:180MG-FREQ:EVERY 14 DAYS
     Route: 042
     Dates: start: 20080114, end: 20080331
  2. BEVACIZUMAB [Suspect]
     Indication: COLON CANCER
     Dosage: FREQ:EVERY 14 DATS
     Route: 042
     Dates: start: 20071024, end: 20080331
  3. FLUOROURACIL [Suspect]
     Indication: COLON CANCER
     Dosage: DAILY DOSE:2400MG-FREQ:EVERY 14 DAYS
     Route: 042
     Dates: start: 20071024, end: 20080331

REACTIONS (7)
  - CENTRAL NERVOUS SYSTEM LESION [None]
  - CEREBRAL MICROANGIOPATHY [None]
  - CONFUSIONAL STATE [None]
  - DEMENTIA [None]
  - INCONTINENCE [None]
  - MEMORY IMPAIRMENT [None]
  - POLYNEUROPATHY [None]
